FAERS Safety Report 18533801 (Version 1)
Quarter: 2020Q4

REPORT INFORMATION
  Report Type: Spontaneous
  Country: US (occurrence: US)
  Receive Date: 20201121
  Receipt Date: 20201121
  Transmission Date: 20210114
  Serious: Yes (Death, Hospitalization)
  Sender: FDA-Public Use
  Company Number: None

PATIENT
  Age: 71 Year
  Sex: Male
  Weight: 106.6 kg

DRUGS (2)
  1. CYTARABINE. [Suspect]
     Active Substance: CYTARABINE
     Dates: end: 20201102
  2. DAUNORUBICIN [Suspect]
     Active Substance: DAUNORUBICIN
     Dates: end: 20201009

REACTIONS (12)
  - Enterococcal infection [None]
  - Breath sounds abnormal [None]
  - Hypoxia [None]
  - Fluid overload [None]
  - Metabolic acidosis [None]
  - Blood culture positive [None]
  - Urine output decreased [None]
  - Renal replacement therapy [None]
  - Pyrexia [None]
  - Neutropenia [None]
  - Oxygen saturation decreased [None]
  - Blood creatinine increased [None]

NARRATIVE: CASE EVENT DATE: 20201116
